FAERS Safety Report 6959056-4 (Version None)
Quarter: 2010Q3

REPORT INFORMATION
  Report Type: 
  Country: None (occurrence: None)
  Receive Date: 20100831
  Receipt Date: 20100817
  Transmission Date: 20110219
  Serious: Yes (Other)
  Sender: FDA-Public Use
  Company Number: GB-MYLANLABS-2010S1013570

PATIENT
  Age: 63 Year
  Sex: Male

DRUGS (4)
  1. ALLOPURINOL [Suspect]
     Indication: CHONDROCALCINOSIS PYROPHOSPHATE
  2. INDOMETHACIN SODIUM [Suspect]
     Indication: CHONDROCALCINOSIS PYROPHOSPHATE
  3. PREDNISOLONE [Suspect]
     Indication: CHONDROCALCINOSIS PYROPHOSPHATE
  4. PREDNISOLONE [Suspect]

REACTIONS (5)
  - ARTHROPATHY [None]
  - CHONDROCALCINOSIS PYROPHOSPHATE [None]
  - CUSHINGOID [None]
  - DRUG INEFFECTIVE [None]
  - WEIGHT INCREASED [None]
